FAERS Safety Report 16285847 (Version 1)
Quarter: 2019Q2

REPORT INFORMATION
  Report Type: Spontaneous
  Country: IT (occurrence: IT)
  Receive Date: 20190508
  Receipt Date: 20190508
  Transmission Date: 20190711
  Serious: Yes (Hospitalization)
  Sender: FDA-Public Use
  Company Number: IT-ELI_LILLY_AND_COMPANY-IT201902001448

PATIENT
  Age: 44 Year
  Sex: Male

DRUGS (1)
  1. ZYPADHERA [Suspect]
     Active Substance: OLANZAPINE PAMOATE
     Indication: MENTAL DISORDER
     Dosage: 1 DF, SINGLE
     Route: 030
     Dates: start: 20190124, end: 20190124

REACTIONS (3)
  - Agitation [Recovering/Resolving]
  - Delusion [Recovering/Resolving]
  - Sopor [Recovering/Resolving]

NARRATIVE: CASE EVENT DATE: 20190124
